FAERS Safety Report 7511521-7 (Version None)
Quarter: 2011Q2

REPORT INFORMATION
  Report Type: 
  Country: None (occurrence: None)
  Receive Date: 20110531
  Receipt Date: 20110524
  Transmission Date: 20111010
  Serious: Yes (Hospitalization, Disabling)
  Sender: FDA-Public Use
  Company Number: FR-B.I. PHARMACEUTICALS,INC./RIDGEFIELD-2011-FF-00519FF

PATIENT
  Age: 81 Year
  Sex: Female

DRUGS (5)
  1. ACETAMINOPHEN [Concomitant]
     Indication: OSTEOARTHRITIS
  2. SPIRIVA [Suspect]
     Indication: CHRONIC OBSTRUCTIVE PULMONARY DISEASE
     Dosage: 18 MCG
     Route: 055
     Dates: start: 20090301, end: 20110522
  3. EUPHYLLINE [Concomitant]
  4. SERETIDE [Concomitant]
  5. EUPRESSYL [Concomitant]

REACTIONS (14)
  - DYSPNOEA [None]
  - SUFFOCATION FEELING [None]
  - STOMATITIS [None]
  - PHOTOPSIA [None]
  - WRIST FRACTURE [None]
  - HAND FRACTURE [None]
  - FATIGUE [None]
  - DENTAL CARIES [None]
  - FUNGAL INFECTION [None]
  - TOOTH DISORDER [None]
  - DYSPHONIA [None]
  - NASAL CONGESTION [None]
  - DRY MOUTH [None]
  - CONSTIPATION [None]
